FAERS Safety Report 7874597-3 (Version None)
Quarter: 2011Q4

REPORT INFORMATION
  Report Type: 
  Country: None (occurrence: None)
  Receive Date: 20111031
  Receipt Date: 20111020
  Transmission Date: 20120403
  Serious: Yes (Hospitalization, Other)
  Sender: FDA-Public Use
  Company Number: JP-PFIZER INC-2011190797

PATIENT
  Age: 64 Year
  Sex: Female
  Weight: 41.8 kg

DRUGS (4)
  1. CELECOXIB [Suspect]
     Indication: RHEUMATOID ARTHRITIS
     Dosage: 200 MG, 2X/DAY
     Route: 048
     Dates: start: 20110413, end: 20110727
  2. TRICOR [Concomitant]
     Indication: RHEUMATOID ARTHRITIS
     Dosage: UNK
  3. RHEUMATREX [Suspect]
     Indication: RHEUMATOID ARTHRITIS
     Dosage: 6 MG, WEEKLY
     Route: 048
     Dates: start: 20110413, end: 20110727
  4. MUCOSTA [Concomitant]
     Indication: RHEUMATOID ARTHRITIS
     Dosage: UNK
     Route: 048
     Dates: start: 20110413, end: 20110727

REACTIONS (1)
  - INTERSTITIAL LUNG DISEASE [None]
